FAERS Safety Report 8042566-9 (Version None)
Quarter: 2012Q1

REPORT INFORMATION
  Report Type: 
  Country: None (occurrence: None)
  Receive Date: 20120112
  Receipt Date: 20120109
  Transmission Date: 20120608
  Serious: Yes (Hospitalization)
  Sender: FDA-Public Use
  Company Number: FR-PFIZER INC-2012005368

PATIENT
  Age: 66 Year
  Sex: Female

DRUGS (11)
  1. ATORVASTATIN CALCIUM [Suspect]
     Indication: BLOOD CHOLESTEROL INCREASED
     Dosage: 10 MG, ONCE DAILY
     Route: 048
     Dates: start: 20110901
  2. ACETAMINOPHEN [Concomitant]
     Dosage: 1 TO 2 G DAILY
  3. MYCOPHENOLATE MOFETIL (CELLCEPT) [Suspect]
     Indication: AUTOIMMUNE HEPATITIS
     Dosage: 1 G, TWICE DAILY
     Route: 048
     Dates: start: 20110901
  4. PREDNISONE TAB [Concomitant]
     Indication: AUTOIMMUNE HEPATITIS
     Dosage: 1 MG/KG/DAY
     Dates: start: 20110901
  5. PREDNISONE TAB [Concomitant]
     Indication: RENAL FAILURE ACUTE
  6. PREDNISONE TAB [Concomitant]
     Indication: AUTOIMMUNE DISORDER
  7. ZOLPIDEM [Concomitant]
     Dosage: 10 MG DAILY
  8. MYCOPHENOLATE MOFETIL (CELLCEPT) [Suspect]
     Indication: RENAL FAILURE
  9. LOVENOX [Concomitant]
     Indication: PROPHYLAXIS
     Dosage: AT PREVENTIVE DOSAGE
  10. RABEPRAZOLE SODIUM [Concomitant]
     Dosage: 20 MG PER DAY
  11. MYCOPHENOLATE MOFETIL (CELLCEPT) [Suspect]
     Indication: AUTOIMMUNE DISORDER

REACTIONS (2)
  - CEREBELLAR SYNDROME [None]
  - BALANCE DISORDER [None]
